FAERS Safety Report 5493309-4 (Version None)
Quarter: 2007Q4

REPORT INFORMATION
  Report Type: 
  Country: None (occurrence: None)
  Receive Date: 20071023
  Receipt Date: 20061017
  Transmission Date: 20080405
  Serious: Yes (Hospitalization)
  Sender: FDA-Public Use
  Company Number: US-BRISTOL-MYERS SQUIBB COMPANY-13544135

PATIENT
  Age: 30 Year
  Sex: Female
  Weight: 49 kg

DRUGS (1)
  1. KENALOG-40 [Suspect]
     Dosage: RECEIVED KENALOG-40 INJECTIONS IN SEP-2005 AND ^0.25CC^ INJECTION IN NOV-2005
     Route: 058

REACTIONS (1)
  - INJECTION SITE ATROPHY [None]
